FAERS Safety Report 17075875 (Version 1)
Quarter: 2019Q4

REPORT INFORMATION
  Report Type: Spontaneous
  Country: US (occurrence: US)
  Receive Date: 20191121
  Receipt Date: 20191121
  Transmission Date: 20200122
  Serious: Yes (Hospitalization)
  Sender: FDA-Public Use
  Company Number: None

PATIENT
  Age: 59 Year
  Sex: Male
  Weight: 74 kg

DRUGS (3)
  1. NANOLIPOSOMAL IRINOTECAN [Suspect]
     Active Substance: IRINOTECAN
     Indication: GLIOBLASTOMA
     Route: 042
     Dates: start: 20191106
  2. ENOXAPARIN [Suspect]
     Active Substance: ENOXAPARIN
  3. TEMOZOLOMIDE 100MG [Suspect]
     Active Substance: TEMOZOLOMIDE
     Indication: GLIOBLASTOMA
     Route: 048
     Dates: start: 20191106, end: 20191112

REACTIONS (5)
  - Brain oedema [None]
  - Tumour haemorrhage [None]
  - Malignant neoplasm progression [None]
  - Anticoagulant therapy [None]
  - Haemorrhage intracranial [None]

NARRATIVE: CASE EVENT DATE: 20191113
